FAERS Safety Report 6806339-4 (Version None)
Quarter: 2010Q2

REPORT INFORMATION
  Report Type: 
  Country: None (occurrence: None)
  Receive Date: 20100629
  Receipt Date: 20080531
  Transmission Date: 20101027
  Serious: Yes (Other)
  Sender: FDA-Public Use
  Company Number: US-PFIZER INC-2008008577

PATIENT
  Age: 66 Year
  Sex: Male
  Weight: 82.55 kg

DRUGS (8)
  1. TIKOSYN [Suspect]
     Indication: ATRIAL FIBRILLATION
     Dates: start: 20080101
  2. ACETYLSALICYLIC ACID [Concomitant]
  3. DIOVANE [Concomitant]
  4. ZETIA [Concomitant]
  5. LIPITOR [Concomitant]
  6. NEXIUM [Concomitant]
  7. POTASSIUM [Concomitant]
  8. CALCIUM CARBONATE [Concomitant]

REACTIONS (1)
  - ELECTROCARDIOGRAM QT PROLONGED [None]
